FAERS Safety Report 18944087 (Version 2)
Quarter: 2021Q1

REPORT INFORMATION
  Report Type: Spontaneous
  Country: US (occurrence: US)
  Receive Date: 20210226
  Receipt Date: 20210315
  Transmission Date: 20210420
  Serious: No
  Sender: FDA-Public Use
  Company Number: US-BIOVITRUM-2021US1776

PATIENT
  Sex: Female
  Weight: 12 kg

DRUGS (3)
  1. CEFDINIR. [Concomitant]
     Active Substance: CEFDINIR
     Dosage: 125 MG/5 ML SUSP RECON
     Route: 065
  2. SYNAGIS [Suspect]
     Active Substance: PALIVIZUMAB
     Indication: SPINAL MUSCULAR ATROPHY
     Dosage: 50MG/0.5 ML VIAL LIQUID, 100MG/1ML VIAL LIQUID
     Route: 030
  3. MIRALAX [Concomitant]
     Active Substance: POLYETHYLENE GLYCOL 3350
     Dosage: POWDER
     Route: 065

REACTIONS (2)
  - Off label use [Unknown]
  - Weight decreased [Unknown]
